FAERS Safety Report 7666700-5 (Version None)
Quarter: 2011Q3

REPORT INFORMATION
  Report Type: 
  Country: None (occurrence: None)
  Receive Date: 20110806
  Receipt Date: 20110630
  Transmission Date: 20111222
  Serious: No
  Sender: FDA-Public Use
  Company Number: US-ABBOTT-11P-163-0835510-00

PATIENT
  Sex: Male
  Weight: 118.04 kg

DRUGS (4)
  1. ASPIRIN [Concomitant]
     Indication: PRODUCT USED FOR UNKNOWN INDICATION
     Dosage: EVERY MORNING
  2. NIASPAN [Suspect]
     Indication: LOW DENSITY LIPOPROTEIN INCREASED
     Dates: start: 20070101
  3. NIASPAN [Suspect]
     Indication: DRUG INTOLERANCE
     Dosage: AT BEDTIME
  4. LASIX [Concomitant]
     Indication: PRODUCT USED FOR UNKNOWN INDICATION

REACTIONS (5)
  - FLUSHING [None]
  - LOW DENSITY LIPOPROTEIN INCREASED [None]
  - DRY SKIN [None]
  - PRURITUS [None]
  - PARAESTHESIA [None]
